FAERS Safety Report 5569083-X (Version None)
Quarter: 2007Q4

REPORT INFORMATION
  Report Type: 
  Country: None (occurrence: None)
  Receive Date: 20071220
  Receipt Date: 20070702
  Transmission Date: 20080405
  Serious: No
  Sender: FDA-Public Use
  Company Number: A0661304A

PATIENT
  Age: 61 Year
  Sex: Male

DRUGS (5)
  1. AVODART [Suspect]
     Indication: BENIGN PROSTATIC HYPERPLASIA
     Dosage: .5MG PER DAY
     Route: 048
  2. FOLIC ACID [Concomitant]
  3. MULTI-VITAMIN [Concomitant]
  4. CALCIUM [Concomitant]
  5. ASPIRIN [Concomitant]

REACTIONS (3)
  - ERECTILE DYSFUNCTION [None]
  - SEMEN ABNORMAL [None]
  - SEMEN VOLUME DECREASED [None]
